FAERS Safety Report 4979631-6 (Version None)
Quarter: 2006Q1

REPORT INFORMATION
  Report Type: 
  Country: None (occurrence: None)
  Receive Date: 20060227
  Receipt Date: 20051215
  Transmission Date: 20060701
  Serious: Yes (Other)
  Sender: FDA-Public Use
  Company Number: DSA_27544_2005

PATIENT
  Age: 59 Year
  Sex: Female

DRUGS (10)
  1. VASOTEC [Suspect]
     Dosage: 5 MG BID
     Dates: start: 20040513, end: 20040515
  2. PLAVIX [Concomitant]
  3. LEXAPRO [Concomitant]
  4. ROFECOXIB( MSD) [Concomitant]
  5. CIPRO [Concomitant]
  6. LIPITOR [Concomitant]
  7. AMITRIPTYLINE HYDROCHLORIDE [Concomitant]
  8. METFORMIN [Concomitant]
  9. DARVOCET-N 100 [Concomitant]
  10. ASPIRIN [Concomitant]

REACTIONS (2)
  - HYPERSENSITIVITY [None]
  - SWOLLEN TONGUE [None]
